FAERS Safety Report 4694511-1 (Version None)
Quarter: 2005Q2

REPORT INFORMATION
  Report Type: 
  Country: None (occurrence: None)
  Receive Date: 20050614
  Receipt Date: 20050517
  Transmission Date: 20051028
  Serious: No
  Sender: FDA-Public Use
  Company Number: USA050393958

PATIENT
  Age: 72 Year
  Sex: Male

DRUGS (3)
  1. CIALIS [Suspect]
     Dosage: 20 MG
  2. IMURAN [Concomitant]
  3. VIAGRA [Concomitant]

REACTIONS (2)
  - MYALGIA [None]
  - THERAPEUTIC RESPONSE DECREASED [None]
